FAERS Safety Report 8901858 (Version 1)
Quarter: 2012Q4

REPORT INFORMATION
  Report Type: Spontaneous
  Country: US (occurrence: None)
  Receive Date: 20121109
  Receipt Date: 20121109
  Transmission Date: 20130627
  Serious: Yes (Hospitalization, Other)
  Sender: FDA-Public Use
  Company Number: None

PATIENT
  Age: 57 Year
  Sex: Male
  Weight: 102.06 kg

DRUGS (2)
  1. LOSARTAN [Suspect]
     Indication: BLOOD PRESSURE INCREASED
     Dosage: 1 tablet a day oral
     Dates: start: 20100920, end: 201101
  2. PRAVASTATIN [Suspect]
     Dosage: 1/2 tablet a day oral
     Dates: start: 20100920, end: 20110214

REACTIONS (6)
  - Pain [None]
  - Bone pain [None]
  - Musculoskeletal stiffness [None]
  - Muscular weakness [None]
  - Polymyalgia rheumatica [None]
  - Oedema peripheral [None]
